FAERS Safety Report 23244886 (Version 3)
Quarter: 2023Q4

REPORT INFORMATION
  Report Type: Spontaneous
  Country: GB (occurrence: GB)
  Receive Date: 20231130
  Receipt Date: 20231206
  Transmission Date: 20240110
  Serious: Yes (Other)
  Sender: FDA-Public Use
  Company Number: GB-SA-2021SA059174

PATIENT
  Age: 51 Year
  Sex: Male
  Weight: 53 kg

DRUGS (16)
  1. NICOTINE [Suspect]
     Active Substance: NICOTINE
     Indication: Drug therapy
     Dosage: DOSE DESCRIPTION : 21 MG, QD, PATCH, EVERY 24 HOURS
     Route: 065
  2. NICOTINE [Suspect]
     Active Substance: NICOTINE
     Dosage: DOSE DESCRIPTION : 21 MG, QD, PATCH, EVERY 24 HOURS
     Route: 065
  3. NICOTINE [Suspect]
     Active Substance: NICOTINE
     Dosage: DOSE DESCRIPTION : 21 MG, QD, PATCH, EVERY 24 HOURS
     Route: 065
  4. NICOTINE [Suspect]
     Active Substance: NICOTINE
     Dosage: DOSE DESCRIPTION : 21 MG, QD, PATCH, EVERY 24 HOURS
     Route: 065
  5. NICOTINE [Suspect]
     Active Substance: NICOTINE
     Dosage: DOSE DESCRIPTION : 21 MG, QD, PATCH, EVERY 24 HOURS
     Route: 065
  6. CALCIUM CARBONATE\CHOLECALCIFEROL [Suspect]
     Active Substance: CALCIUM CARBONATE\CHOLECALCIFEROL
     Indication: Mineral supplementation
     Dosage: DOSE DESCRIPTION : 1 DF
     Route: 065
  7. CALCIUM CARBONATE\CHOLECALCIFEROL [Suspect]
     Active Substance: CALCIUM CARBONATE\CHOLECALCIFEROL
     Dosage: DOSE DESCRIPTION : 8 DF
     Route: 065
  8. CALCIUM CARBONATE\CHOLECALCIFEROL [Suspect]
     Active Substance: CALCIUM CARBONATE\CHOLECALCIFEROL
     Dosage: DOSE DESCRIPTION : 2 DF
     Route: 065
  9. BIOTIN [Suspect]
     Active Substance: BIOTIN
     Indication: Product used for unknown indication
     Dosage: 3 DF
     Route: 065
  10. CYANOCOBALAMIN [Suspect]
     Active Substance: CYANOCOBALAMIN
     Indication: Product used for unknown indication
     Route: 065
  11. ACETAMINOPHEN\CODEINE PHOSPHATE [Suspect]
     Active Substance: ACETAMINOPHEN\CODEINE PHOSPHATE
     Indication: Product used for unknown indication
     Dosage: UNK
     Route: 065
  12. FOLIC ACID [Suspect]
     Active Substance: FOLIC ACID
     Indication: Product used for unknown indication
     Dosage: 1 DF
     Route: 065
  13. NICOTINAMIDE [Suspect]
     Active Substance: NIACINAMIDE
     Indication: Product used for unknown indication
     Dosage: 1 DF, QD
     Route: 065
  14. RIBOFLAVIN [Suspect]
     Active Substance: RIBOFLAVIN
     Indication: Product used for unknown indication
     Dosage: 1 DF, QD
     Route: 065
  15. THIAMINE HYDROCHLORIDE [Suspect]
     Active Substance: THIAMINE HYDROCHLORIDE
     Indication: Nutritional supplementation
     Dosage: 300 MG, QD
     Route: 065
  16. THIAMINE HYDROCHLORIDE [Suspect]
     Active Substance: THIAMINE HYDROCHLORIDE
     Dosage: 1 DF, QD
     Route: 065

REACTIONS (1)
  - Hypersensitivity [Recovered/Resolved]

NARRATIVE: CASE EVENT DATE: 20200825
